FAERS Safety Report 8780743 (Version 1)
Quarter: 2012Q4

REPORT INFORMATION
  Report Type: 
  Country: US (occurrence: US)
  Receive Date: 20120913
  Receipt Date: 20120913
  Transmission Date: 20130627
  Serious: No
  Sender: FDA-Public Use
  Company Number: US-PFIZER INC-2012223172

PATIENT
  Age: 74 Year
  Sex: Female
  Weight: 58.5 kg

DRUGS (5)
  1. ADVIL PM [Suspect]
     Indication: PAIN IN EXTREMITY
     Dosage: 2 caplets, daily at night
     Route: 048
     Dates: start: 201208
  2. ADVIL PM [Suspect]
     Indication: SLEEP DISORDER
  3. VITAMIN D3 [Concomitant]
     Indication: OSTEOPOROSIS
     Dosage: UNK
  4. CALCIUM [Concomitant]
     Indication: OSTEOPOROSIS
     Dosage: UNK
  5. MULTIVITAMINS [Concomitant]
     Indication: OSTEOPOROSIS
     Dosage: UNK

REACTIONS (1)
  - Drug ineffective [Unknown]
